FAERS Safety Report 23798613 (Version 1)
Quarter: 2024Q2

REPORT INFORMATION
  Report Type: Spontaneous
  Country: FR (occurrence: FR)
  Receive Date: 20240430
  Receipt Date: 20240430
  Transmission Date: 20240716
  Serious: Yes (Life-Threatening, Hospitalization, Other)
  Sender: FDA-Public Use
  Company Number: FR-002147023-NVSC2023FR032175

PATIENT
  Age: 81 Year
  Sex: Female
  Weight: 67 kg

DRUGS (14)
  1. SIMVASTATIN [Interacting]
     Active Substance: SIMVASTATIN
     Indication: Dyslipidaemia
     Dosage: UNK
     Route: 048
     Dates: start: 20020101
  2. SIMVASTATIN [Interacting]
     Active Substance: SIMVASTATIN
     Indication: Hypercholesterolaemia
     Dosage: 20 MG (SIMVASTATIN PLUS EZETIMIBE 10 MG FOR FIVE YEARS)
     Route: 048
     Dates: end: 20211229
  3. SIMVASTATIN [Interacting]
     Active Substance: SIMVASTATIN
     Dosage: OVER TWENTY YEARS
     Route: 065
  4. LETROZOLE [Suspect]
     Active Substance: LETROZOLE
     Indication: Hormone receptor positive breast cancer
     Dosage: 2.5 MG, QD
     Route: 065
     Dates: start: 20211204
  5. LETROZOLE [Suspect]
     Active Substance: LETROZOLE
     Indication: HER2 negative breast cancer
  6. LETROZOLE [Suspect]
     Active Substance: LETROZOLE
     Indication: Hormone receptor positive HER2 negative breast cancer
  7. LETROZOLE [Suspect]
     Active Substance: LETROZOLE
     Indication: Breast cancer metastatic
  8. PALBOCICLIB [Interacting]
     Active Substance: PALBOCICLIB
     Indication: Hormone receptor positive breast cancer
     Dosage: 125 MG, QD (21 DAYS/28)
     Route: 048
     Dates: start: 20211203, end: 2022
  9. PALBOCICLIB [Interacting]
     Active Substance: PALBOCICLIB
     Indication: HER2 negative breast cancer
     Dosage: 125 MG, CYCLIC(PALBOCICLIB125 MG PER DAY, 21 DAYS/28)
     Route: 065
  10. PALBOCICLIB [Interacting]
     Active Substance: PALBOCICLIB
     Indication: Hormone receptor positive HER2 negative breast cancer
  11. PALBOCICLIB [Interacting]
     Active Substance: PALBOCICLIB
     Indication: Breast cancer metastatic
  12. FENUGREEK SEED [Interacting]
     Active Substance: FENUGREEK SEED
     Indication: Decreased appetite
     Dosage: UNK
     Route: 048
     Dates: start: 20211222, end: 20211224
  13. EZETIMIBE [Concomitant]
     Active Substance: EZETIMIBE
     Indication: Dyslipidaemia
     Dosage: 10 MG
     Route: 048
     Dates: start: 20020101, end: 20211229
  14. EZETIMIBE [Concomitant]
     Active Substance: EZETIMIBE
     Indication: Hypercholesterolaemia

REACTIONS (2)
  - Rhabdomyolysis [Recovered/Resolved]
  - Drug interaction [Recovered/Resolved]
